FAERS Safety Report 25680827 (Version 1)
Quarter: 2025Q3

REPORT INFORMATION
  Report Type: Spontaneous
  Country: AU (occurrence: AU)
  Receive Date: 20250814
  Receipt Date: 20250814
  Transmission Date: 20251021
  Serious: Yes (Life-Threatening, Hospitalization, Other)
  Sender: MYLAN
  Company Number: AU-002147023-PHHY2008AU08027

PATIENT
  Age: 28 Year
  Sex: Male

DRUGS (26)
  1. CLOZARIL [Suspect]
     Active Substance: CLOZAPINE
     Indication: Schizophrenia
     Dates: start: 20080418, end: 20080512
  2. CLOZARIL [Suspect]
     Active Substance: CLOZAPINE
     Dates: start: 20080418, end: 20080512
  3. CLOZARIL [Suspect]
     Active Substance: CLOZAPINE
     Route: 048
  4. CLOZARIL [Suspect]
     Active Substance: CLOZAPINE
  5. CLOZARIL [Suspect]
     Active Substance: CLOZAPINE
     Route: 048
  6. CLOZARIL [Suspect]
     Active Substance: CLOZAPINE
  7. ZUCLOPENTHIXOL [Suspect]
     Active Substance: ZUCLOPENTHIXOL
     Indication: Product used for unknown indication
     Dosage: 250 MILLIGRAM, BIWEEKLY
  8. ZUCLOPENTHIXOL [Suspect]
     Active Substance: ZUCLOPENTHIXOL
     Dosage: 250 MILLIGRAM, BIWEEKLY
     Route: 030
  9. ZUCLOPENTHIXOL [Suspect]
     Active Substance: ZUCLOPENTHIXOL
     Dosage: 250 MILLIGRAM, BIWEEKLY
     Route: 030
  10. ZUCLOPENTHIXOL [Suspect]
     Active Substance: ZUCLOPENTHIXOL
     Dosage: 250 MILLIGRAM, BIWEEKLY
  11. RISPERIDONE [Concomitant]
     Active Substance: RISPERIDONE
     Indication: Product used for unknown indication
  12. RISPERIDONE [Concomitant]
     Active Substance: RISPERIDONE
     Route: 030
  13. RISPERIDONE [Concomitant]
     Active Substance: RISPERIDONE
     Route: 030
  14. RISPERIDONE [Concomitant]
     Active Substance: RISPERIDONE
  15. COCAINE [Concomitant]
     Active Substance: COCAINE
     Indication: Product used for unknown indication
  16. COCAINE [Concomitant]
     Active Substance: COCAINE
     Route: 065
  17. COCAINE [Concomitant]
     Active Substance: COCAINE
     Route: 065
  18. COCAINE [Concomitant]
     Active Substance: COCAINE
  19. AMPHETAMINE [Concomitant]
     Active Substance: AMPHETAMINE
     Indication: Product used for unknown indication
  20. AMPHETAMINE [Concomitant]
     Active Substance: AMPHETAMINE
     Route: 065
  21. AMPHETAMINE [Concomitant]
     Active Substance: AMPHETAMINE
     Route: 065
  22. AMPHETAMINE [Concomitant]
     Active Substance: AMPHETAMINE
  23. FISH OIL [Concomitant]
     Active Substance: FISH OIL
     Indication: Hyperlipidaemia
     Dosage: 2 GRAM, TID
  24. FISH OIL [Concomitant]
     Active Substance: FISH OIL
     Dosage: 2 GRAM, TID
     Route: 065
  25. FISH OIL [Concomitant]
     Active Substance: FISH OIL
     Dosage: 2 GRAM, TID
     Route: 065
  26. FISH OIL [Concomitant]
     Active Substance: FISH OIL
     Dosage: 2 GRAM, TID

REACTIONS (17)
  - Cardiac arrest [Recovered/Resolved]
  - Myocarditis [Recovered/Resolved]
  - Tachycardia [Unknown]
  - Heart rate increased [Unknown]
  - Vomiting [Recovering/Resolving]
  - Musculoskeletal stiffness [Unknown]
  - Akathisia [Unknown]
  - Extrapyramidal disorder [Unknown]
  - Epstein-Barr virus antibody positive [Recovered/Resolved]
  - Atelectasis [Recovered/Resolved]
  - Chest pain [Recovered/Resolved]
  - Dyspnoea [Recovered/Resolved]
  - Regurgitation [Recovered/Resolved]
  - Carditis [Recovered/Resolved]
  - Troponin T increased [Recovered/Resolved]
  - Eosinophil count increased [Recovered/Resolved]
  - Pericarditis [Recovered/Resolved]

NARRATIVE: CASE EVENT DATE: 20050512
